FAERS Safety Report 7230517-6 (Version None)
Quarter: 2011Q1

REPORT INFORMATION
  Report Type: 
  Country: None (occurrence: None)
  Receive Date: 20110118
  Receipt Date: 20110105
  Transmission Date: 20110831
  Serious: Yes (Other)
  Sender: FDA-Public Use
  Company Number: PHHY2010FR87620

PATIENT
  Sex: Male

DRUGS (6)
  1. RIVOTRIL [Concomitant]
     Dosage: 2.5 MG/ML, TID
     Route: 048
     Dates: end: 20100815
  2. EQUANIL [Suspect]
     Dosage: 400 MG, BID
     Route: 048
     Dates: start: 20100816, end: 20100818
  3. LEPONEX [Suspect]
     Dosage: 25 MG, QD
     Route: 048
     Dates: start: 20100816
  4. LOXEN [Concomitant]
     Indication: HYPERTENSION
     Dosage: 50 MG, QD
     Dates: start: 20100815, end: 20100820
  5. GUTRON [Concomitant]
     Indication: ORTHOSTATIC HYPERTENSION
     Dosage: 2.5 MG, TID
     Dates: start: 20100817
  6. EXELON [Concomitant]
     Dosage: 9.5 MG DAILY
     Route: 062

REACTIONS (2)
  - PSYCHOMOTOR RETARDATION [None]
  - SOMNOLENCE [None]
